FAERS Safety Report 8777450 (Version 1)
Quarter: 2012Q4

REPORT INFORMATION
  Report Type: Report from Study
  Country: CA (occurrence: CA)
  Receive Date: 20120911
  Receipt Date: 20120911
  Transmission Date: 20130627
  Serious: Yes (Other)
  Sender: FDA-Public Use
  Company Number: CA-JNJFOC-20120901516

PATIENT
  Age: 40 Year
  Sex: Female
  Weight: 99.4 kg

DRUGS (13)
  1. REMICADE [Suspect]
     Indication: ANKYLOSING SPONDYLITIS
     Route: 042
  2. LYRICA [Concomitant]
     Route: 065
  3. ESTROGEN [Concomitant]
     Route: 065
  4. WELLBUTRIN [Concomitant]
     Route: 065
  5. TRAZADOL [Concomitant]
     Route: 065
  6. BISOPROLOL [Concomitant]
     Route: 065
  7. ZOPICLONE [Concomitant]
     Route: 065
  8. VENTOLIN [Concomitant]
     Route: 065
  9. FLOVENT [Concomitant]
     Route: 065
  10. FLONASE [Concomitant]
     Route: 065
  11. NEXIUM [Concomitant]
     Route: 065
  12. CIPRALEX [Concomitant]
     Route: 065
  13. STOOL SOFTENERS [Concomitant]
     Route: 065

REACTIONS (2)
  - Fall [Recovered/Resolved]
  - Skeletal injury [Recovered/Resolved]
